FAERS Safety Report 13660385 (Version 1)
Quarter: 2017Q2

REPORT INFORMATION
  Report Type: Spontaneous
  Country: US (occurrence: US)
  Receive Date: 20170615
  Receipt Date: 20170615
  Transmission Date: 20170830
  Serious: Yes (Other)
  Sender: FDA-Public Use
  Company Number: None

PATIENT
  Age: 52 Year
  Sex: Male

DRUGS (1)
  1. ENBREL [Suspect]
     Active Substance: ETANERCEPT
     Indication: PSORIATIC ARTHROPATHY
     Dosage: INJECT 1ML (50MG TOTAL) WEEKLY SUBCUTANEOUSLY
     Route: 058
     Dates: start: 20070615

REACTIONS (4)
  - Therapy cessation [None]
  - Impaired driving ability [None]
  - Psoriatic arthropathy [None]
  - Dizziness [None]

NARRATIVE: CASE EVENT DATE: 20170515
